FAERS Safety Report 21517503 (Version 3)
Quarter: 2022Q4

REPORT INFORMATION
  Report Type: Spontaneous
  Country: US (occurrence: US)
  Receive Date: 20221028
  Receipt Date: 20221130
  Transmission Date: 20230112
  Serious: No
  Sender: FDA-Public Use
  Company Number: US-JNJFOC-20221037281

PATIENT
  Age: 65 Year
  Sex: Female
  Weight: 78.542 kg

DRUGS (2)
  1. SPRAVATO [Suspect]
     Active Substance: ESKETAMINE
     Indication: Major depression
     Dates: start: 20221011, end: 20221011
  2. SPRAVATO [Suspect]
     Active Substance: ESKETAMINE
     Dates: start: 20211204

REACTIONS (2)
  - Device malfunction [Recovered/Resolved]
  - Underdose [Unknown]

NARRATIVE: CASE EVENT DATE: 20221011
